FAERS Safety Report 18833582 (Version 2)
Quarter: 2021Q1

REPORT INFORMATION
  Report Type: Spontaneous
  Country: US (occurrence: US)
  Receive Date: 20210203
  Receipt Date: 20210324
  Transmission Date: 20210419
  Serious: No
  Sender: FDA-Public Use
  Company Number: US-CELGENEUS-USA-20210107353

PATIENT
  Age: 55 Year
  Sex: Female

DRUGS (2)
  1. OZANIMOD. [Suspect]
     Active Substance: OZANIMOD
     Indication: MULTIPLE SCLEROSIS
     Dosage: .92 MILLIGRAM
     Route: 048
     Dates: start: 20210114
  2. OZANIMOD. [Suspect]
     Active Substance: OZANIMOD
     Dosage: .92 MILLIGRAM
     Route: 048
     Dates: start: 20210121, end: 20210123

REACTIONS (3)
  - Fatigue [Recovering/Resolving]
  - Unevaluable event [Recovering/Resolving]
  - Neuralgia [Recovering/Resolving]

NARRATIVE: CASE EVENT DATE: 2021
